FAERS Safety Report 8358949-3 (Version None)
Quarter: 2012Q2

REPORT INFORMATION
  Report Type: 
  Country: None (occurrence: None)
  Receive Date: 20120515
  Receipt Date: 20120503
  Transmission Date: 20120825
  Serious: No
  Sender: FDA-Public Use
  Company Number: US-BIOGENIDEC-2012BI015923

PATIENT
  Age: 50 Year
  Sex: Female

DRUGS (1)
  1. TYSABRI [Suspect]
     Indication: MULTIPLE SCLEROSIS
     Route: 042
     Dates: start: 20061120

REACTIONS (6)
  - RENAL CYST [None]
  - BALANCE DISORDER [None]
  - HYPOAESTHESIA [None]
  - NEPHROLITHIASIS [None]
  - URINARY INCONTINENCE [None]
  - FATIGUE [None]
